FAERS Safety Report 6654177-8 (Version None)
Quarter: 2010Q1

REPORT INFORMATION
  Report Type: 
  Country: None (occurrence: None)
  Receive Date: 20100324
  Receipt Date: 20100312
  Transmission Date: 20100710
  Serious: Yes (Disabling)
  Sender: FDA-Public Use
  Company Number: LEO-2010-00161

PATIENT
  Age: 65 Year
  Sex: Female

DRUGS (9)
  1. DOVONEX [Suspect]
     Indication: PSORIASIS
     Dates: start: 20100202, end: 20100208
  2. ASPIRIN [Concomitant]
  3. ATENOLOL (ATENOLOL) [Concomitant]
  4. BENDROFLUMETHIAZIDE (BENDROFLUMETHIAZIDE) [Concomitant]
  5. DOUBLEBASE (ISOPROPYL MYRISTATE, PARAFFIN, LIQUID) [Concomitant]
  6. XEMESTANE (EXEMESTANE) [Concomitant]
  7. LEVOTHYROXINE SODIUM [Concomitant]
  8. LEVOTHYROXINE SODIUM [Concomitant]
  9. RAMIPRIL [Concomitant]

REACTIONS (1)
  - HYPERSENSITIVITY [None]
